FAERS Safety Report 18860819 (Version 1)
Quarter: 2021Q1

REPORT INFORMATION
  Report Type: Report from Study
  Country: US (occurrence: US)
  Receive Date: 20210208
  Receipt Date: 20210208
  Transmission Date: 20210420
  Serious: Yes (Other)
  Sender: FDA-Public Use
  Company Number: US-UCBSA-2021004387

PATIENT
  Age: 63 Year
  Sex: Female

DRUGS (1)
  1. LACOSAMIDE. [Suspect]
     Active Substance: LACOSAMIDE
     Indication: SEIZURE
     Dosage: 150 MG HALF TABLET AM AND 1 IN PM

REACTIONS (2)
  - Product use issue [Unknown]
  - Toe operation [Not Recovered/Not Resolved]

NARRATIVE: CASE EVENT DATE: 20210127
